FAERS Safety Report 5293111-2 (Version None)
Quarter: 2007Q2

REPORT INFORMATION
  Report Type: 
  Country: None (occurrence: None)
  Receive Date: 20070411
  Receipt Date: 20070403
  Transmission Date: 20071010
  Serious: Yes (Other)
  Sender: FDA-Public Use
  Company Number: US-BAYER-200710753BWH

PATIENT
  Age: 61 Year
  Sex: Male

DRUGS (4)
  1. AVELOX [Suspect]
     Indication: DRUG USE FOR UNKNOWN INDICATION
     Dosage: TOTAL DAILY DOSE: 400  MG  UNIT DOSE: 400 MG
     Route: 048
     Dates: start: 20070221, end: 20070221
  2. DARVOCET [Concomitant]
     Route: 048
     Dates: start: 20070220
  3. FLOMAX [Concomitant]
  4. LISINOPRIL [Concomitant]
     Route: 048

REACTIONS (6)
  - ERYTHEMA [None]
  - FLUID IMBALANCE [None]
  - HYPERSENSITIVITY [None]
  - HYPOTENSION [None]
  - MENTAL STATUS CHANGES [None]
  - PRURITUS [None]
